FAERS Safety Report 11330067 (Version 3)
Quarter: 2015Q4

REPORT INFORMATION
  Report Type: Report from Study
  Country: GB (occurrence: GB)
  Receive Date: 20150803
  Receipt Date: 20151104
  Transmission Date: 20160304
  Serious: Yes (Hospitalization)
  Sender: FDA-Public Use
  Company Number: GB-ROCHE-1554954

PATIENT
  Age: 67 Year
  Sex: Female
  Weight: 63.9 kg

DRUGS (18)
  1. LENOGRASTIM [Concomitant]
     Active Substance: LENOGRASTIM
     Indication: NEUTROPENIA
     Route: 065
     Dates: start: 20140820
  2. LAXIDO ORANGE [Concomitant]
     Indication: CONSTIPATION
     Route: 065
     Dates: start: 20140116
  3. PERTUZUMAB [Suspect]
     Active Substance: PERTUZUMAB
     Dosage: MAINTENENCE DOSE?RECENT DOSE PRIOR TO SECOND OCCURENCE OF LEFT HIP DISLOCATION : 03/JUL//2015?RECENT
     Route: 042
     Dates: start: 20141111
  4. TRASTUZUMAB [Suspect]
     Active Substance: TRASTUZUMAB
     Indication: HER-2 POSITIVE BREAST CANCER
     Dosage: LOADING DOSE
     Route: 042
     Dates: start: 20141021, end: 20141021
  5. PYRIDOXINE [Concomitant]
     Active Substance: PYRIDOXINE
     Indication: NEUROPATHY PERIPHERAL
     Route: 065
     Dates: start: 20141222
  6. FLAMAZINE [Concomitant]
     Active Substance: SILVER SULFADIAZINE
     Route: 065
     Dates: start: 20150205, end: 20150219
  7. CYCLOPHOSPHAMIDE. [Suspect]
     Active Substance: CYCLOPHOSPHAMIDE
     Indication: HER-2 POSITIVE BREAST CANCER
     Route: 065
     Dates: start: 20140819
  8. EPIRUBICIN [Suspect]
     Active Substance: EPIRUBICIN
     Indication: HER-2 POSITIVE BREAST CANCER
     Route: 065
     Dates: start: 20140819
  9. IBUPROFEN. [Concomitant]
     Active Substance: IBUPROFEN
     Indication: INFLAMMATION
     Route: 065
     Dates: start: 20140819
  10. PERTUZUMAB [Suspect]
     Active Substance: PERTUZUMAB
     Indication: HER-2 POSITIVE BREAST CANCER
     Dosage: LOADING DOSE
     Route: 042
     Dates: start: 20141021, end: 20141021
  11. DOCETAXEL. [Suspect]
     Active Substance: DOCETAXEL
     Indication: HER-2 POSITIVE BREAST CANCER
     Dosage: MOST RECENT DOSE PRIOR TO SAE WAS ON: 02/DEC/2014
     Route: 042
     Dates: start: 20141021
  12. 5-FLUOROURACIL [Suspect]
     Active Substance: FLUOROURACIL
     Indication: HER-2 POSITIVE BREAST CANCER
     Route: 065
     Dates: start: 20140819
  13. CO-AMOXICLAV [Concomitant]
     Active Substance: AMOXICILLIN\CLAVULANIC ACID
     Indication: UPPER RESPIRATORY TRACT INFECTION
     Route: 065
     Dates: start: 20150227, end: 20150306
  14. ONDANSETRON [Concomitant]
     Active Substance: ONDANSETRON
     Indication: MALAISE
     Route: 065
     Dates: start: 20140819
  15. COTRIMOXAZOLE [Concomitant]
     Active Substance: SULFAMETHOXAZOLE\TRIMETHOPRIM
     Route: 065
     Dates: start: 20140819
  16. DEXAMETHASONE. [Concomitant]
     Active Substance: DEXAMETHASONE
     Indication: VOMITING
     Route: 065
     Dates: start: 20140819
  17. TRASTUZUMAB [Suspect]
     Active Substance: TRASTUZUMAB
     Dosage: MAINTENENCE DOSE?RECENT DOSE PRIOR TO SECOND OCCURENCE OF LEFT HIP DISLOCATION : 03/JUL//2015?RECENT
     Route: 042
     Dates: start: 20141111
  18. DOMPERIDONE [Concomitant]
     Active Substance: DOMPERIDONE
     Indication: MALAISE
     Route: 065
     Dates: end: 20140819

REACTIONS (2)
  - Joint dislocation [Not Recovered/Not Resolved]
  - Joint dislocation [Recovered/Resolved with Sequelae]

NARRATIVE: CASE EVENT DATE: 20150308
